FAERS Safety Report 22135847 (Version 1)
Quarter: 2023Q1

REPORT INFORMATION
  Report Type: Spontaneous
  Country: US (occurrence: None)
  Receive Date: 20230324
  Receipt Date: 20230324
  Transmission Date: 20230417
  Serious: Yes (Hospitalization, Other)
  Sender: FDA-Public Use
  Company Number: US-ROCHE-3312014

PATIENT
  Age: 76 Year
  Sex: Female

DRUGS (4)
  1. AVASTIN [Suspect]
     Active Substance: BEVACIZUMAB
     Indication: Ovarian cancer recurrent
     Dosage: PATIENT STATED SHE HAS BEEN OFF AND ON IT SINCE PROBABLY 2020 ;ONGOING: NO
     Route: 042
     Dates: start: 202302
  2. LYNPARZA [Suspect]
     Active Substance: OLAPARIB
     Indication: Ovarian cancer recurrent
     Dosage: PATIENT STATED SHE TAKES 2 IN THE MORNING AND 2 IN THE EVENING + EACH PILL IS 150 MG
     Route: 048
     Dates: start: 202301, end: 2023
  3. ROSUVASTATIN [Concomitant]
     Active Substance: ROSUVASTATIN
     Indication: Blood cholesterol increased
     Dosage: PATIENT STATES SHE BEGAN IT A LONG TIME AGO
     Route: 048
  4. METOPROLOL [Concomitant]
     Active Substance: METOPROLOL
     Indication: Palpitations
     Dosage: PATIENT STATED SHE STARTED MANY YEARS AGO
     Route: 048

REACTIONS (4)
  - Dyspnoea [Not Recovered/Not Resolved]
  - Cataract [Not Recovered/Not Resolved]
  - Cardiomyopathy [Recovered/Resolved]
  - Asthenia [Unknown]

NARRATIVE: CASE EVENT DATE: 20230101
